FAERS Safety Report 8250847-9 (Version None)
Quarter: 2012Q2

REPORT INFORMATION
  Report Type: 
  Country: None (occurrence: None)
  Receive Date: 20120402
  Receipt Date: 20120321
  Transmission Date: 20120825
  Serious: Yes (Hospitalization)
  Sender: FDA-Public Use
  Company Number: PHHO2011JP16824

PATIENT
  Sex: Female
  Weight: 56 kg

DRUGS (31)
  1. ALISKIREN [Suspect]
     Dosage: 1 DF, DAILY
     Route: 048
     Dates: start: 20110119
  2. JANUVIA [Concomitant]
     Indication: DIABETES MELLITUS
     Dosage: 50 MG, UNK
     Route: 048
     Dates: end: 20111002
  3. LASIX [Concomitant]
     Dosage: 20 MG, UNK
     Route: 048
  4. ZETIA [Concomitant]
     Indication: LIPID METABOLISM DISORDER
     Dosage: 10 MG, UNK
     Route: 048
  5. ASPIRIN [Concomitant]
     Indication: MYOCARDIAL ISCHAEMIA
     Dosage: 100 MG, UNK
     Route: 048
  6. EPADEL [Concomitant]
     Indication: LIPID METABOLISM DISORDER
     Dosage: 1800 MG, UNK
     Route: 048
     Dates: start: 20110525
  7. AMIODARONE HYDROCHLORIDE [Concomitant]
     Indication: CARDIAC FAILURE CHRONIC
     Dosage: 400 MG, UNK
     Route: 048
     Dates: start: 20120122
  8. ADALAT CC [Concomitant]
     Indication: HYPERTENSION
     Dosage: 60 MG, UNK
     Route: 048
     Dates: start: 20110427, end: 20111002
  9. AMARYL [Concomitant]
     Indication: DIABETES MELLITUS
     Dosage: 2 MG, UNK
     Route: 048
     Dates: start: 20110914
  10. AMARYL [Concomitant]
     Dosage: 4 MG, UNK
     Route: 048
  11. METFORMIN HCL [Concomitant]
     Indication: DIABETES MELLITUS
     Dosage: 1000 MG, UNK
     Route: 048
     Dates: start: 20111201, end: 20120207
  12. HUMULIN R [Concomitant]
     Indication: DIABETES MELLITUS
     Dosage: 15 IU, UNK
     Route: 058
     Dates: start: 20120119, end: 20120123
  13. ALISKIREN [Suspect]
     Dosage: 150 MG, DAILY
     Route: 048
     Dates: start: 20110202, end: 20111001
  14. ENALAPRIL MALEATE [Suspect]
     Dosage: 20 MG, BID
     Route: 048
     Dates: start: 20110105
  15. CARVEDILOL [Concomitant]
     Indication: CARDIAC FAILURE CHRONIC
     Dosage: 20 MG, UNK
     Route: 048
     Dates: start: 20110720
  16. SIGMART [Concomitant]
     Indication: CARDIAC FAILURE CHRONIC
     Dosage: 15 MG, UNK
     Route: 048
  17. PLAVIX [Concomitant]
     Indication: MYOCARDIAL ISCHAEMIA
     Dosage: 75 MG, UNK
     Route: 048
     Dates: start: 20111013
  18. AMIODARONE HYDROCHLORIDE [Concomitant]
     Dosage: 200 MG, UNK
     Route: 048
  19. ALLOPURINOL [Concomitant]
     Indication: HYPERURICAEMIA
     Dosage: 100 MG, UNK
     Route: 048
  20. LASIX [Concomitant]
     Dosage: 40 MG, UNK
     Route: 048
  21. ENALAPRIL MALEATE [Concomitant]
     Indication: CARDIAC FAILURE CHRONIC
     Dosage: 5 MG, UNK
     Route: 048
     Dates: start: 20111013
  22. ALISKIREN [Suspect]
     Indication: CARDIAC FAILURE
     Dosage: UNK
     Route: 048
     Dates: start: 20110202
  23. TRICHLORMETHIAZIDE [Concomitant]
     Indication: CARDIAC FAILURE CHRONIC
     Dosage: 1 MG, UNK
     Route: 048
     Dates: start: 20111121, end: 20120207
  24. ALDACTONE [Concomitant]
     Indication: CARDIAC FAILURE CHRONIC
     Dosage: 12.5 MG, UNK
     Route: 048
     Dates: start: 20111201
  25. ENALAPRIL MALEATE [Suspect]
     Indication: CARDIAC FAILURE
     Dosage: 10 MG, BID
     Route: 048
     Dates: start: 20101215
  26. LASIX [Concomitant]
     Indication: CARDIAC FAILURE CHRONIC
     Dosage: 20 MG, UNK
     Route: 048
     Dates: start: 20110525
  27. GLUCOBAY [Concomitant]
     Indication: DIABETES MELLITUS
     Dosage: UNK
     Dates: start: 20110427, end: 20111002
  28. RABEPRAZOLE SODIUM [Concomitant]
     Indication: GASTROOESOPHAGEAL REFLUX DISEASE
     Dosage: 10 MG, UNK
     Route: 048
     Dates: start: 20120124
  29. NOVOLIN R [Concomitant]
     Indication: DIABETES MELLITUS
     Dosage: UNK
     Dates: start: 20120128
  30. LANTUS [Concomitant]
     Indication: DIABETES MELLITUS
     Dosage: UNK
     Dates: start: 20120202
  31. CRESTOR [Concomitant]
     Indication: LIPID METABOLISM DISORDER
     Dosage: 5 MG, UNK
     Route: 048
     Dates: start: 20110427

REACTIONS (4)
  - VENTRICULAR TACHYCARDIA [None]
  - CARDIAC FAILURE [None]
  - CARDIAC FAILURE ACUTE [None]
  - RENAL CELL CARCINOMA [None]
